FAERS Safety Report 4961342-4 (Version None)
Quarter: 2006Q2

REPORT INFORMATION
  Report Type: 
  Country: None (occurrence: None)
  Receive Date: 20060403
  Receipt Date: 20050823
  Transmission Date: 20061013
  Serious: Yes (Hospitalization, Other)
  Sender: FDA-Public Use
  Company Number: US-MERCK-0508USA03933

PATIENT
  Sex: Female
  Weight: 84 kg

DRUGS (3)
  1. VIOXX [Suspect]
     Indication: MONARTHRITIS
     Route: 048
     Dates: start: 20031004, end: 20041004
  2. COZAAR [Concomitant]
     Route: 048
  3. GLUCOPHAGE [Concomitant]
     Route: 065

REACTIONS (9)
  - ADVERSE EVENT [None]
  - ARTHROPATHY [None]
  - CHEST PAIN [None]
  - HEART RATE INCREASED [None]
  - HYPERHIDROSIS [None]
  - MYOCARDIAL INFARCTION [None]
  - OEDEMA PERIPHERAL [None]
  - ROAD TRAFFIC ACCIDENT [None]
  - SWELLING FACE [None]
